FAERS Safety Report 16776145 (Version 1)
Quarter: 2019Q3

REPORT INFORMATION
  Report Type: Spontaneous
  Country: US (occurrence: US)
  Receive Date: 20190905
  Receipt Date: 20190905
  Transmission Date: 20191005
  Serious: No
  Sender: FDA-Public Use
  Company Number: US-PFIZER INC-2019382648

PATIENT
  Age: 61 Year
  Sex: Female

DRUGS (1)
  1. VENLAFAXINE HCL [Suspect]
     Active Substance: VENLAFAXINE HYDROCHLORIDE
     Dosage: 0.75 MG, 1X/DAY (IN THE MORNING)

REACTIONS (4)
  - Nervousness [Unknown]
  - Drug hypersensitivity [Unknown]
  - Asthenia [Unknown]
  - Feeling abnormal [Unknown]
